FAERS Safety Report 14267633 (Version 1)
Quarter: 2017Q4

REPORT INFORMATION
  Report Type: Spontaneous
  Country: US (occurrence: US)
  Receive Date: 20171210
  Receipt Date: 20171210
  Transmission Date: 20180321
  Serious: Yes (Other)
  Sender: FDA-Public Use
  Company Number: None

PATIENT
  Age: 51 Year
  Sex: Female
  Weight: 56.25 kg

DRUGS (2)
  1. CHANTIX [Suspect]
     Active Substance: VARENICLINE TARTRATE
  2. PHENYTOIN. [Concomitant]
     Active Substance: PHENYTOIN

REACTIONS (5)
  - Anger [None]
  - Depression [None]
  - Mood swings [None]
  - Suicidal ideation [None]
  - Seizure [None]

NARRATIVE: CASE EVENT DATE: 20111231
